FAERS Safety Report 19967688 (Version 2)
Quarter: 2021Q4

REPORT INFORMATION
  Report Type: Spontaneous
  Country: CA (occurrence: CA)
  Receive Date: 20211019
  Receipt Date: 20211025
  Transmission Date: 20220303
  Serious: Yes (Hospitalization, Other)
  Sender: FDA-Public Use
  Company Number: CA-MACLEODS PHARMACEUTICALS US LTD-MAC2021033000

PATIENT

DRUGS (6)
  1. PANTOPRAZOLE [Suspect]
     Active Substance: PANTOPRAZOLE
     Indication: Gastrooesophageal reflux disease
     Dosage: 1 DOSAGE FORM, QD, PANTOPRAZOLE HEMIMAGNESIUM MONOHYDRATE
     Route: 048
     Dates: start: 20110722, end: 2019
  2. GEMCITABINE [Concomitant]
     Active Substance: GEMCITABINE
     Indication: Pancreatic carcinoma
     Dosage: 4200 MG/M2, 1 CYCLE
     Route: 065
     Dates: start: 2019
  3. PACLITAXEL [Concomitant]
     Active Substance: PACLITAXEL
     Indication: Pancreatic carcinoma
     Dosage: 150 MG/M2, 1 CYCLE
     Route: 065
     Dates: start: 2019
  4. PACLITAXEL [Concomitant]
     Active Substance: PACLITAXEL
     Dosage: 525 MG/M2, 1 CYCLE
     Route: 065
     Dates: start: 2019
  5. AMOXICILLIN\CLAVULANATE POTASSIUM [Concomitant]
     Active Substance: AMOXICILLIN\CLAVULANATE POTASSIUM
     Indication: Febrile neutropenia
     Dosage: 1 DOSAGE FORM, BID
     Route: 048
  6. CIPROFLOXACIN [Concomitant]
     Active Substance: CIPROFLOXACIN
     Indication: Febrile neutropenia
     Dosage: 500 MILLIGRAM, BID
     Route: 048

REACTIONS (7)
  - Pancreatic failure [Recovered/Resolved]
  - Flatulence [Recovered/Resolved]
  - Diarrhoea [Recovered/Resolved]
  - Abdominal pain [Recovered/Resolved]
  - Drug withdrawal syndrome [Recovered/Resolved]
  - Unmasking of previously unidentified disease [Recovered/Resolved]
  - Steatorrhoea [Recovered/Resolved]

NARRATIVE: CASE EVENT DATE: 20190101
